FAERS Safety Report 18016254 (Version 3)
Quarter: 2022Q1

REPORT INFORMATION
  Report Type: Spontaneous
  Country: JP (occurrence: JP)
  Receive Date: 20200713
  Receipt Date: 20220128
  Transmission Date: 20220424
  Serious: Yes (Hospitalization)
  Sender: FDA-Public Use
  Company Number: JP-ELI_LILLY_AND_COMPANY-JP202007003297

PATIENT
  Age: 2 Year
  Sex: Female
  Weight: 8.4 kg

DRUGS (30)
  1. ADCIRCA [Suspect]
     Active Substance: TADALAFIL
     Indication: Pulmonary arterial hypertension
     Dosage: 10 MG, DAILY
     Route: 065
     Dates: start: 20180616
  2. UPTRAVI [Concomitant]
     Active Substance: SELEXIPAG
     Indication: Pulmonary arterial hypertension
     Dosage: 0.05 MG, BID
     Route: 048
     Dates: start: 20180623, end: 20180628
  3. UPTRAVI [Concomitant]
     Active Substance: SELEXIPAG
     Dosage: 0.1 MG, BID
     Route: 048
     Dates: start: 20180629, end: 20180702
  4. UPTRAVI [Concomitant]
     Active Substance: SELEXIPAG
     Dosage: 0.125 MG, BID
     Route: 048
     Dates: start: 20180703, end: 20180703
  5. UPTRAVI [Concomitant]
     Active Substance: SELEXIPAG
     Dosage: 0.15 MG, BID
     Route: 048
     Dates: start: 20180704, end: 20180710
  6. UPTRAVI [Concomitant]
     Active Substance: SELEXIPAG
     Dosage: 0.175 MG, BID
     Route: 048
     Dates: start: 20180711, end: 20180714
  7. UPTRAVI [Concomitant]
     Active Substance: SELEXIPAG
     Dosage: 0.2 MG, BID
     Route: 048
     Dates: start: 20180715, end: 20180718
  8. UPTRAVI [Concomitant]
     Active Substance: SELEXIPAG
     Dosage: 0.225 MG, BID
     Route: 048
     Dates: start: 20180719, end: 20180723
  9. UPTRAVI [Concomitant]
     Active Substance: SELEXIPAG
     Dosage: 0.25 MG, BID
     Route: 048
     Dates: start: 20180724, end: 20181102
  10. UPTRAVI [Concomitant]
     Active Substance: SELEXIPAG
     Dosage: 0.275 MG, BID
     Route: 048
     Dates: start: 20181103, end: 20181220
  11. UPTRAVI [Concomitant]
     Active Substance: SELEXIPAG
     Dosage: 0.3 MG, BID
     Route: 048
     Dates: start: 20181221
  12. MIDAZOLAM [Concomitant]
     Active Substance: MIDAZOLAM
     Indication: Anaesthetic premedication
     Dosage: 4.5 ML, DAILY
     Route: 065
     Dates: start: 20181031, end: 20181031
  13. OPSUMIT [Concomitant]
     Active Substance: MACITENTAN
     Indication: Pulmonary arterial hypertension
     Dosage: 2 MG, DAILY
     Dates: start: 20180615
  14. CARVEDILOL [Concomitant]
     Active Substance: CARVEDILOL
     Indication: Product used for unknown indication
     Dosage: UNK, UNKNOWN
     Route: 065
     Dates: start: 20180621
  15. PIMOBENDAN [Concomitant]
     Active Substance: PIMOBENDAN
     Indication: Product used for unknown indication
     Dosage: 0.6 MG, DAILY
     Dates: start: 20180621, end: 20180623
  16. PIMOBENDAN [Concomitant]
     Active Substance: PIMOBENDAN
     Dosage: UNK, UNKNOWN
     Route: 065
     Dates: start: 20180625, end: 20190620
  17. PIMOBENDAN [Concomitant]
     Active Substance: PIMOBENDAN
     Dosage: 1.1 MG, DAILY
     Route: 065
     Dates: start: 20190621, end: 20200324
  18. PIMOBENDAN [Concomitant]
     Active Substance: PIMOBENDAN
     Dosage: 1.2 UNK
     Route: 065
     Dates: start: 20200325
  19. ENALAPRIL MALEATE [Concomitant]
     Active Substance: ENALAPRIL MALEATE
     Indication: Product used for unknown indication
     Dosage: 1 MG, DAILY
     Route: 065
     Dates: start: 20180621, end: 20180625
  20. ENALAPRIL MALEATE [Concomitant]
     Active Substance: ENALAPRIL MALEATE
     Dosage: UNK, UNKNOWN
     Route: 065
     Dates: start: 20180626, end: 20181017
  21. ENALAPRIL MALEATE [Concomitant]
     Active Substance: ENALAPRIL MALEATE
     Dosage: UNK, UNKNOWN
     Route: 065
     Dates: start: 20181020
  22. BERAPROST SODIUM [Concomitant]
     Active Substance: BERAPROST SODIUM
     Indication: Pulmonary arterial hypertension
     Dosage: 18 UG, DAILY
     Route: 065
     Dates: start: 20180614, end: 20180623
  23. WARFARIN POTASSIUM [Concomitant]
     Active Substance: WARFARIN POTASSIUM
     Indication: Product used for unknown indication
     Dosage: UNK, UNKNOWN
     Route: 065
     Dates: start: 20180622, end: 20181016
  24. WARFARIN POTASSIUM [Concomitant]
     Active Substance: WARFARIN POTASSIUM
     Dosage: UNK, UNKNOWN
     Route: 065
     Dates: start: 20181017, end: 20190221
  25. WARFARIN POTASSIUM [Concomitant]
     Active Substance: WARFARIN POTASSIUM
     Dosage: UNK, UNKNOWN
     Route: 065
     Dates: start: 20190222, end: 20191016
  26. WARFARIN POTASSIUM [Concomitant]
     Active Substance: WARFARIN POTASSIUM
     Dosage: 0.8 MG, DAILY
     Route: 065
     Dates: start: 20191017, end: 20191104
  27. WARFARIN POTASSIUM [Concomitant]
     Active Substance: WARFARIN POTASSIUM
     Dosage: 0.8 MG, DAILY
     Route: 065
     Dates: start: 20191106
  28. ASPIRIN [Concomitant]
     Active Substance: ASPIRIN
     Indication: Product used for unknown indication
     Dosage: UNK, UNKNOWN
     Route: 065
     Dates: start: 20180624, end: 20191105
  29. ASPIRIN [Concomitant]
     Active Substance: ASPIRIN
     Dosage: 50 MG, DAILY
     Route: 065
     Dates: start: 20191107
  30. HYDROCHLOROTHIAZIDE [Concomitant]
     Active Substance: HYDROCHLOROTHIAZIDE
     Indication: Product used for unknown indication
     Dosage: 10 MG, DAILY
     Route: 065
     Dates: start: 20180703, end: 20180711

REACTIONS (5)
  - Renal failure [Recovered/Resolved]
  - Peripheral venous disease [Recovered/Resolved]
  - Renal failure [Recovered/Resolved]
  - Hypotension [Recovered/Resolved]
  - Off label use [Unknown]

NARRATIVE: CASE EVENT DATE: 20180625
